FAERS Safety Report 4867985-0 (Version None)
Quarter: 2005Q4

REPORT INFORMATION
  Report Type: 
  Country: None (occurrence: None)
  Receive Date: 20051229
  Receipt Date: 20051219
  Transmission Date: 20060501
  Serious: Yes (Hospitalization)
  Sender: FDA-Public Use
  Company Number: JP-JNJFOC-20051105149

PATIENT
  Sex: Female
  Weight: 38 kg

DRUGS (10)
  1. INFLIXIMAB [Suspect]
     Route: 042
  2. INFLIXIMAB [Suspect]
     Indication: RHEUMATOID ARTHRITIS
     Route: 042
  3. RHEUMATREX [Suspect]
     Indication: RHEUMATOID ARTHRITIS
     Dosage: STARTED BEFORE 11-JUL-2005
     Route: 048
  4. PREDNISOLONE [Suspect]
     Indication: RHEUMATOID ARTHRITIS
     Dosage: STARTED BEFORE 11-JUL-2005
     Route: 048
  5. MOBIC [Concomitant]
     Indication: RHEUMATOID ARTHRITIS
     Dosage: STARTED BEFORE 11-JUL-2005
     Route: 048
  6. SOLON [Concomitant]
     Indication: PROPHYLAXIS
     Dosage: STARTED BEFORE 11-JUL-2005
     Route: 048
  7. TAKEPRON [Concomitant]
     Indication: PROPHYLAXIS
     Dosage: STARTED BEFORE 11-JUL-2005
     Route: 048
  8. FERO GRADUMET [Concomitant]
     Route: 048
  9. ISODINE GARGLE [Concomitant]
     Indication: PROPHYLAXIS
     Dosage: 70 MG/ML(^OPTIMAL DAILY DOSE^)
  10. FOLIAMIN [Concomitant]
     Indication: PROPHYLAXIS
     Dosage: BEFORE 11-JUL-2005
     Route: 048

REACTIONS (1)
  - GASTROENTERITIS [None]
